FAERS Safety Report 6160797-X (Version None)
Quarter: 2009Q2

REPORT INFORMATION
  Report Type: 
  Country: None (occurrence: None)
  Receive Date: 20090420
  Receipt Date: 20090416
  Transmission Date: 20091009
  Serious: Yes (Life-Threatening, Hospitalization, Disabling, Other)
  Sender: FDA-Public Use
  Company Number: PHBS2009JP00820

PATIENT
  Age: 55 Year
  Sex: Female

DRUGS (7)
  1. NEORAL [Suspect]
     Indication: CORD BLOOD TRANSPLANT THERAPY
     Dosage: UNK
     Route: 048
     Dates: start: 20061101
  2. NEORAL [Suspect]
     Dosage: 40 MG/DAY
     Dates: end: 20070101
  3. SANDIMMUNE [Concomitant]
     Indication: CORD BLOOD TRANSPLANT THERAPY
     Dosage: UNK
     Dates: start: 20061020, end: 20061101
  4. SANDIMMUNE [Concomitant]
     Dosage: UNK
     Dates: start: 20070101
  5. BUSULFAN [Concomitant]
     Indication: CORD BLOOD TRANSPLANT THERAPY
     Dosage: 1.6 MG/KG/DAY; DAY -9 AND -5
     Route: 042
  6. FLUDARABINE PHOSPHATE [Concomitant]
     Indication: CORD BLOOD TRANSPLANT THERAPY
     Dosage: 30 MG//M2/DAY, DAYS -9 TO -4
  7. IRRADIATION [Concomitant]
     Dosage: 4 GY

REACTIONS (11)
  - ACUTE GRAFT VERSUS HOST DISEASE [None]
  - CARDIAC FAILURE ACUTE [None]
  - CARDIOMEGALY [None]
  - CHRONIC GRAFT VERSUS HOST DISEASE [None]
  - DYSPNOEA [None]
  - ENDOTRACHEAL INTUBATION [None]
  - OEDEMA PERIPHERAL [None]
  - PLEURAL EFFUSION [None]
  - PNEUMONIA [None]
  - RENAL FAILURE ACUTE [None]
  - STAPHYLOCOCCAL SEPSIS [None]
